FAERS Safety Report 10048785 (Version 2)
Quarter: 2014Q2

REPORT INFORMATION
  Report Type: Spontaneous
  Country: NL (occurrence: NL)
  Receive Date: 20140331
  Receipt Date: 20140415
  Transmission Date: 20141212
  Serious: Yes (Other)
  Sender: FDA-Public Use
  Company Number: NL-WATSON-2014-05827

PATIENT
  Sex: Male

DRUGS (5)
  1. SOTALOL [Suspect]
     Indication: PRODUCT USED FOR UNKNOWN INDICATION
     Dosage: 40 MG, BID; 2DD1
     Route: 048
  2. PRAVASTATINE [Concomitant]
     Indication: PRODUCT USED FOR UNKNOWN INDICATION
     Dosage: 20 MG, DAILY; 1DD1
     Route: 048
  3. ACENOCOUMAROL [Concomitant]
     Indication: PRODUCT USED FOR UNKNOWN INDICATION
     Dosage: 1 DF, UNK; ACCORDING TO SPECIFICATIONS OF THROMBOSIS
     Route: 048
  4. TAMSULOSIN                         /01280302/ [Concomitant]
     Indication: PRODUCT USED FOR UNKNOWN INDICATION
     Dosage: 0.4 MG, DAILY; 1DD1
     Route: 048
  5. CANDESARTAN                        /01349502/ [Concomitant]
     Indication: PRODUCT USED FOR UNKNOWN INDICATION
     Dosage: 8 MG, DAILY; 1DD1
     Route: 048

REACTIONS (4)
  - Hearing impaired [Recovered/Resolved]
  - Ageusia [Recovered/Resolved]
  - Anosmia [Recovered/Resolved]
  - Sinusitis [Recovered/Resolved]
